FAERS Safety Report 13978557 (Version 1)
Quarter: 2017Q3

REPORT INFORMATION
  Report Type: Spontaneous
  Country: US (occurrence: US)
  Receive Date: 20170915
  Receipt Date: 20170915
  Transmission Date: 20171128
  Serious: No
  Sender: FDA-Public Use
  Company Number: US-LPDUSPRD-20161109

PATIENT
  Sex: Female

DRUGS (4)
  1. STERIODS [Concomitant]
     Active Substance: UNSPECIFIED INGREDIENT
     Dosage: UNKNOWN
  2. BENADRYL [Concomitant]
     Active Substance: DIPHENHYDRAMINE HYDROCHLORIDE
     Dosage: UNKNOWN
  3. PEPCID [Concomitant]
     Active Substance: FAMOTIDINE
     Dosage: UNKNOWN
  4. INJECTAFER [Suspect]
     Active Substance: FERRIC CARBOXYMALTOSE
     Dosage: 750 MG
     Route: 065
     Dates: start: 20161207, end: 20161207

REACTIONS (2)
  - Chest discomfort [Unknown]
  - Throat irritation [Unknown]

NARRATIVE: CASE EVENT DATE: 20161207
